FAERS Safety Report 15245340 (Version 2)
Quarter: 2018Q4

REPORT INFORMATION
  Report Type: Spontaneous
  Country: US (occurrence: US)
  Receive Date: 20180806
  Receipt Date: 20181101
  Transmission Date: 20190204
  Serious: Yes (Other)
  Sender: FDA-Public Use
  Company Number: US-BRISTOL-MYERS SQUIBB COMPANY-BMS-2018-071274

PATIENT
  Sex: Female

DRUGS (1)
  1. SPRYCEL [Suspect]
     Active Substance: DASATINIB
     Indication: CHRONIC MYELOID LEUKAEMIA
     Dosage: 50 MG, QD
     Route: 048
     Dates: start: 20180713

REACTIONS (5)
  - Sepsis [Not Recovered/Not Resolved]
  - Pyrexia [Not Recovered/Not Resolved]
  - Vision blurred [Not Recovered/Not Resolved]
  - Immune system disorder [Not Recovered/Not Resolved]
  - Myalgia [Unknown]
